FAERS Safety Report 5081585-1 (Version None)
Quarter: 2006Q3

REPORT INFORMATION
  Report Type: 
  Country: None (occurrence: None)
  Receive Date: 20060811
  Receipt Date: 20060804
  Transmission Date: 20061208
  Serious: Yes (Other)
  Sender: FDA-Public Use
  Company Number: S06-USA-03037-01

PATIENT
  Age: 36 Year
  Sex: Female

DRUGS (4)
  1. LEXAPRO [Suspect]
     Indication: DEPRESSION
     Dosage: 20 MG QD PO
     Route: 048
     Dates: start: 20060101
  2. LEXAPRO [Suspect]
     Indication: DEPRESSION
     Dosage: 20 MG QD PO
     Route: 048
     Dates: end: 20060101
  3. WELLBUTRIN XL [Suspect]
     Indication: DEPRESSION
     Dosage: 300 MG QD
  4. PRENATAL VITAMINS [Concomitant]

REACTIONS (4)
  - DRUG EXPOSURE DURING PREGNANCY [None]
  - PREGNANCY [None]
  - THROMBOSIS [None]
  - VAGINAL HAEMORRHAGE [None]
